FAERS Safety Report 5008490-0 (Version None)
Quarter: 2006Q2

REPORT INFORMATION
  Report Type: 
  Country: None (occurrence: None)
  Receive Date: 20060518
  Receipt Date: 20060510
  Transmission Date: 20061013
  Serious: Yes (Other)
  Sender: FDA-Public Use
  Company Number: 2006-05-0770

PATIENT
  Sex: Female
  Weight: 59 kg

DRUGS (2)
  1. CELESTONE [Suspect]
     Indication: PYREXIA
     Dosage: 2 MG TID
     Dates: start: 20060509
  2. AMOXICILLIN [Concomitant]

REACTIONS (2)
  - BODY TEMPERATURE FLUCTUATION [None]
  - RASH GENERALISED [None]
